FAERS Safety Report 6120540-7 (Version None)
Quarter: 2009Q1

REPORT INFORMATION
  Report Type: 
  Country: None (occurrence: None)
  Receive Date: 20090317
  Receipt Date: 20090305
  Transmission Date: 20090719
  Serious: Yes (Other)
  Sender: FDA-Public Use
  Company Number: PHHY2009JP07030

PATIENT
  Sex: Female
  Weight: 60 kg

DRUGS (10)
  1. AREDIA [Suspect]
     Indication: METASTASES TO BONE
     Dosage: UNK
     Route: 042
     Dates: start: 20021018, end: 20071002
  2. ZOMETA [Suspect]
     Indication: METASTASES TO BONE
     Dosage: 4 MG
     Route: 042
     Dates: start: 20071026, end: 20081127
  3. ARIMIDEX [Concomitant]
     Indication: METASTASES TO BONE
     Dosage: 1MG
     Route: 048
     Dates: start: 20020626, end: 20060221
  4. NOLVADEX [Concomitant]
     Indication: METASTASES TO BONE
     Dosage: 20MG
     Route: 048
     Dates: start: 20060222, end: 20060529
  5. FARESTON [Concomitant]
     Indication: METASTASES TO BONE
     Dosage: 120MG
     Route: 048
     Dates: start: 20060530, end: 20060904
  6. FEMARA [Concomitant]
     Indication: METASTASES TO BONE
     Dosage: 25MG
     Route: 048
     Dates: start: 20060905, end: 20070319
  7. XELODA [Concomitant]
     Indication: METASTASES TO BONE
     Dosage: 2400 MG
     Route: 048
     Dates: start: 20070320, end: 20070821
  8. NAVELBINE [Concomitant]
     Indication: METASTASES TO BONE
     Dosage: 40MG
     Route: 042
     Dates: start: 20071003
  9. ENDOXAN [Concomitant]
     Indication: METASTASES TO BONE
     Dosage: 100MG
     Route: 048
     Dates: start: 20070612, end: 20070821
  10. TAXOTERE [Concomitant]
     Indication: METASTASES TO BONE
     Dosage: 128.1MG
     Route: 042
     Dates: start: 20080410

REACTIONS (5)
  - BONE DISORDER [None]
  - GINGIVAL SWELLING [None]
  - ORAL SURGERY [None]
  - OSTEONECROSIS [None]
  - TOOTH EXTRACTION [None]
